FAERS Safety Report 14636507 (Version 3)
Quarter: 2018Q2

REPORT INFORMATION
  Report Type: Spontaneous
  Country: JP (occurrence: JP)
  Receive Date: 20180314
  Receipt Date: 20180413
  Transmission Date: 20180711
  Serious: Yes (Other)
  Sender: FDA-Public Use
  Company Number: JP-TEVA-2018-JP-868458

PATIENT
  Age: 85 Year
  Sex: Female

DRUGS (6)
  1. BENDAMUSTINE HYDROCHLORIDE. [Suspect]
     Active Substance: BENDAMUSTINE HYDROCHLORIDE
     Dosage: (SECOND CYCLE)
     Route: 042
     Dates: start: 20180122, end: 20180123
  2. URSODIOL. [Concomitant]
     Active Substance: URSODIOL
     Indication: MANTLE CELL LYMPHOMA
     Dosage: 500 MILLIGRAM DAILY;
     Route: 048
  3. BENDAMUSTINE HYDROCHLORIDE. [Suspect]
     Active Substance: BENDAMUSTINE HYDROCHLORIDE
     Indication: MANTLE CELL LYMPHOMA
     Dosage: (FIRST CYCLE)
     Route: 042
     Dates: start: 20171220, end: 20171221
  4. BENDAMUSTINE HYDROCHLORIDE. [Suspect]
     Active Substance: BENDAMUSTINE HYDROCHLORIDE
     Dosage: (THIRD CYCLE)
     Route: 042
     Dates: start: 20180222, end: 20180223
  5. RITUXIMAB. [Suspect]
     Active Substance: RITUXIMAB
     Indication: MANTLE CELL LYMPHOMA
     Dosage: 500 MILLIGRAM DAILY;
     Route: 041
  6. BENDAMUSTINE HYDROCHLORIDE. [Suspect]
     Active Substance: BENDAMUSTINE HYDROCHLORIDE
     Dosage: (FOURTH CYCLE)
     Route: 042
     Dates: start: 20180314

REACTIONS (2)
  - Hepatic function abnormal [Recovered/Resolved]
  - Prescribed underdose [Unknown]

NARRATIVE: CASE EVENT DATE: 20171220
